FAERS Safety Report 6795292-8 (Version None)
Quarter: 2010Q2

REPORT INFORMATION
  Report Type: 
  Country: None (occurrence: None)
  Receive Date: 20100625
  Receipt Date: 20100615
  Transmission Date: 20101027
  Serious: Yes (Death)
  Sender: FDA-Public Use
  Company Number: CO-ROCHE-709336

PATIENT
  Sex: Male

DRUGS (1)
  1. HERCEPTIN [Suspect]
     Indication: BREAST CANCER
     Route: 042
     Dates: start: 20090106, end: 20100104

REACTIONS (1)
  - CARDIOPULMONARY FAILURE [None]
